FAERS Safety Report 8118347-4 (Version None)
Quarter: 2012Q1

REPORT INFORMATION
  Report Type: 
  Country: None (occurrence: None)
  Receive Date: 20120207
  Receipt Date: 20120202
  Transmission Date: 20120608
  Serious: Yes (Other)
  Sender: FDA-Public Use
  Company Number: IE-PFIZER INC-2012024077

PATIENT
  Age: 62 Year
  Sex: Male

DRUGS (1)
  1. VARENICLINE TARTRATE [Suspect]
     Indication: SMOKING CESSATION THERAPY
     Dosage: UNK
     Dates: end: 20120126

REACTIONS (5)
  - SELF-INJURIOUS IDEATION [None]
  - SUICIDAL IDEATION [None]
  - DEPRESSION [None]
  - VIOLENCE-RELATED SYMPTOM [None]
  - FEELING ABNORMAL [None]
